FAERS Safety Report 10176036 (Version 2)
Quarter: 2014Q2

REPORT INFORMATION
  Report Type: Report from Study
  Country: HN (occurrence: HN)
  Receive Date: 20140516
  Receipt Date: 20140521
  Transmission Date: 20141212
  Serious: Yes (Death, Other)
  Sender: FDA-Public Use
  Company Number: PHHY2014HN058916

PATIENT
  Age: 29 Year
  Sex: Male
  Weight: 89.5 kg

DRUGS (1)
  1. GLIVEC [Suspect]
     Indication: CHRONIC MYELOID LEUKAEMIA
     Dosage: 400 MG, QD
     Route: 048
     Dates: start: 20131030

REACTIONS (3)
  - Death [Fatal]
  - Chronic myeloid leukaemia transformation [Unknown]
  - Hyperuricaemia [Unknown]
